FAERS Safety Report 4469443-4 (Version None)
Quarter: 2004Q4

REPORT INFORMATION
  Report Type: 
  Country: None (occurrence: None)
  Receive Date: 20041005
  Receipt Date: 20041005
  Transmission Date: 20050328
  Serious: Yes (Hospitalization)
  Sender: FDA-Public Use
  Company Number: None

PATIENT
  Sex: Male

DRUGS (8)
  1. ACETAZOLAMIDE [Suspect]
     Dosage: 500 MG   BID   ORAL
     Route: 048
     Dates: start: 20031024, end: 20040506
  2. ATENOLOL [Concomitant]
  3. OMEPRAZOLE [Concomitant]
  4. SIMVASTATIN [Concomitant]
  5. LISINOPRIL [Concomitant]
  6. INSULIN [Concomitant]
  7. HYDROCHLOROTHIAZIDE [Concomitant]
  8. GLYBURIDE [Concomitant]

REACTIONS (4)
  - ANION GAP INCREASED [None]
  - GAIT DISTURBANCE [None]
  - METABOLIC ACIDOSIS [None]
  - RENAL FAILURE ACUTE [None]
